FAERS Safety Report 9841704 (Version 1)
Quarter: 2014Q1

REPORT INFORMATION
  Report Type: Spontaneous
  Country: US (occurrence: US)
  Receive Date: 20140124
  Receipt Date: 20140124
  Transmission Date: 20141002
  Serious: Yes (Hospitalization)
  Sender: FDA-Public Use
  Company Number: US-B.I. PHARMACEUTICALS,INC./RIDGEFIELD-2014-BI-02410BP

PATIENT
  Age: 12 Year
  Sex: Male
  Weight: 69.8 kg

DRUGS (10)
  1. CATAPRES [Suspect]
     Indication: AFFECTIVE DISORDER
     Dosage: 0.2 MG
     Route: 048
     Dates: start: 20120103
  2. CATAPRES [Suspect]
     Dosage: 0.4 MG
     Route: 048
  3. MENINGOCOCCAL GROUP B RLP2086 [Suspect]
     Indication: IMMUNISATION
     Route: 030
     Dates: start: 20130409, end: 20130409
  4. DEPAKOTE (VALPROATE SEMISODIUM) [Suspect]
     Indication: AFFECTIVE DISORDER
     Dosage: 750 MG
     Route: 048
     Dates: start: 20130621
  5. DESYREL (TRAZODONE HYDROCHLORIDE) [Suspect]
     Indication: AFFECTIVE DISORDER
     Dosage: 12.5 MG
     Route: 048
     Dates: start: 20130617
  6. VYVANSE (LISDEXAMFETAMINE MESILATE) [Suspect]
     Indication: ATTENTION DEFICIT/HYPERACTIVITY DISORDER
     Dosage: 40 MG
     Route: 048
     Dates: start: 20130321, end: 20130924
  7. VYVANSE (LISDEXAMFETAMINE MESILATE) [Suspect]
     Dosage: 20 MG
     Route: 048
     Dates: start: 20130321, end: 20130924
  8. PROZAC (FLUOXETINE HYDROCHLORIDE) [Suspect]
     Indication: AFFECTIVE DISORDER
     Dosage: 10 MG
     Route: 048
     Dates: start: 20121108
  9. THORAZINE(CHLORPROMAZINE HYDROCHLORIDE [Suspect]
     Indication: AFFECTIVE DISORDER
     Dosage: 60 MG
     Route: 048
     Dates: start: 20130326
  10. THORAZINE (CHLORPROMAZINE HYDROCHLO RIDE) [Suspect]
     Dosage: 75 MG
     Route: 048
     Dates: start: 20130617

REACTIONS (4)
  - Aggression [Unknown]
  - Agitation [Unknown]
  - Aggression [Unknown]
  - Affective disorder [Recovered/Resolved]
